FAERS Safety Report 10497639 (Version 1)
Quarter: 2014Q4

REPORT INFORMATION
  Report Type: Report from Study
  Country: JP (occurrence: JP)
  Receive Date: 20141006
  Receipt Date: 20141006
  Transmission Date: 20150528
  Serious: Yes (Death)
  Sender: FDA-Public Use
  Company Number: JP-009507513-1410JPN001100

PATIENT
  Age: 50 Year
  Sex: Male

DRUGS (2)
  1. ISENTRESS [Suspect]
     Active Substance: RALTEGRAVIR POTASSIUM
     Indication: HIV INFECTION
     Dosage: 800 MG, DIVIDED DOSE FREQUENCY UNKNOWN, INTERVAL: 1 DAY
     Route: 048
     Dates: start: 20120808, end: 20140212
  2. EPZICOM [Suspect]
     Active Substance: ABACAVIR SULFATE\LAMIVUDINE
     Indication: HIV INFECTION
     Dosage: 1 DOSAGE FORM, DIVIDED DOSE FREQUENCY UNKNOWN, INTERVAL: 1 DAY
     Route: 048
     Dates: start: 20090701, end: 20120212

REACTIONS (1)
  - Death [Fatal]

NARRATIVE: CASE EVENT DATE: 20140304
